FAERS Safety Report 4300119-X (Version None)
Quarter: 2004Q1

REPORT INFORMATION
  Report Type: 
  Country: None (occurrence: None)
  Receive Date: 20040218
  Receipt Date: 20040204
  Transmission Date: 20041129
  Serious: Yes (Life-Threatening, Hospitalization)
  Sender: FDA-Public Use
  Company Number: DSM1KAN0025

PATIENT
  Age: 66 Year
  Sex: Male

DRUGS (1)
  1. ALLOPURINOL [Suspect]
     Indication: GOUT

REACTIONS (17)
  - CONJUNCTIVAL HYPERAEMIA [None]
  - CONJUNCTIVAL SCAR [None]
  - CONJUNCTIVAL ULCER [None]
  - CONJUNCTIVITIS [None]
  - CORNEAL EROSION [None]
  - CORNEAL OPACITY [None]
  - CORNEAL SCAR [None]
  - DRY MOUTH [None]
  - EYE DISCHARGE [None]
  - KERATOCONJUNCTIVITIS SICCA [None]
  - MADAROSIS [None]
  - MULTI-ORGAN FAILURE [None]
  - NEOVASCULARISATION [None]
  - OCULAR DISCOMFORT [None]
  - PYREXIA [None]
  - STEVENS-JOHNSON SYNDROME [None]
  - VOMITING [None]
